FAERS Safety Report 13977287 (Version 1)
Quarter: 2017Q3

REPORT INFORMATION
  Report Type: Spontaneous
  Country: US (occurrence: US)
  Receive Date: 20170915
  Receipt Date: 20170915
  Transmission Date: 20171128
  Serious: No
  Sender: FDA-Public Use
  Company Number: US-ROCHE-676054

PATIENT
  Age: 43 Year
  Sex: Female
  Weight: 78 kg

DRUGS (9)
  1. MVI [Concomitant]
     Active Substance: VITAMINS
     Route: 065
  2. TAMOXIFEN [Concomitant]
     Active Substance: TAMOXIFEN
     Route: 065
  3. ZOFRAN [Concomitant]
     Active Substance: ONDANSETRON HYDROCHLORIDE
     Route: 065
  4. HERCEPTIN [Suspect]
     Active Substance: TRASTUZUMAB
     Indication: BREAST CANCER
     Dosage: ROUTE: IVPB
     Route: 042
  5. ATIVAN [Concomitant]
     Active Substance: LORAZEPAM
     Route: 065
  6. HERCEPTIN [Suspect]
     Active Substance: TRASTUZUMAB
     Route: 042
  7. TAXOL [Concomitant]
     Active Substance: PACLITAXEL
     Dosage: DOSE REPORTED AS 10
     Route: 065
     Dates: start: 200904, end: 200907
  8. ADRIAMYCIN [Concomitant]
     Active Substance: DOXORUBICIN HYDROCHLORIDE
     Route: 065
  9. CAPODEX [Concomitant]
     Route: 065

REACTIONS (2)
  - Abdominal discomfort [Not Recovered/Not Resolved]
  - Abdominal pain [Unknown]

NARRATIVE: CASE EVENT DATE: 200907
